FAERS Safety Report 18065315 (Version 4)
Quarter: 2020Q3

REPORT INFORMATION
  Report Type: Report from Study
  Country: CA (occurrence: CA)
  Receive Date: 20200724
  Receipt Date: 20200924
  Transmission Date: 20201103
  Serious: Yes (Hospitalization)
  Sender: FDA-Public Use
  Company Number: CA-ASTELLAS-2020US024371

PATIENT
  Age: 72 Year
  Sex: Male

DRUGS (3)
  1. ASP2215 [Suspect]
     Active Substance: GILTERITINIB
     Indication: ACUTE MYELOID LEUKAEMIA
     Route: 048
     Dates: start: 20200714, end: 202007
  2. ASP2215 [Suspect]
     Active Substance: GILTERITINIB
     Route: 048
     Dates: start: 202007
  3. ASP2215 [Suspect]
     Active Substance: GILTERITINIB
     Route: 048

REACTIONS (6)
  - Bacterial infection [Unknown]
  - Skin irritation [Unknown]
  - Joint stiffness [Unknown]
  - Dizziness [Unknown]
  - Periorbital swelling [Unknown]
  - Chest pain [Unknown]

NARRATIVE: CASE EVENT DATE: 20200714
